FAERS Safety Report 6037781-X (Version None)
Quarter: 2009Q1

REPORT INFORMATION
  Report Type: 
  Country: None (occurrence: None)
  Receive Date: 20090114
  Receipt Date: 20081229
  Transmission Date: 20090719
  Serious: Yes (Other)
  Sender: FDA-Public Use
  Company Number: 2008S1022872

PATIENT
  Age: 58 Year
  Sex: Male

DRUGS (5)
  1. CIPROFLOXACIN [Suspect]
     Dosage: 200 MG, TWICE A DAY; INTRAVENOUS
     Route: 042
  2. CLOZAPINE [Suspect]
     Dosage: 300 MG; DAILY
  3. VALPROIC ACID [Concomitant]
  4. HYDROCHLOROTHIAZIDE [Concomitant]
  5. CLONAZEPAM [Concomitant]

REACTIONS (4)
  - ALANINE AMINOTRANSFERASE INCREASED [None]
  - ASPARTATE AMINOTRANSFERASE INCREASED [None]
  - DRUG INTERACTION [None]
  - HEPATIC FUNCTION ABNORMAL [None]
